FAERS Safety Report 5962373-8 (Version None)
Quarter: 2008Q4

REPORT INFORMATION
  Report Type: 
  Country: None (occurrence: None)
  Receive Date: 20081121
  Receipt Date: 20081113
  Transmission Date: 20090506
  Serious: Yes (Hospitalization, Other)
  Sender: FDA-Public Use
  Company Number: US-AMGEN-QUU318957

PATIENT
  Sex: Female

DRUGS (1)
  1. ENBREL [Suspect]
     Indication: RHEUMATOID ARTHRITIS
     Route: 058
     Dates: start: 19990520

REACTIONS (7)
  - BLISTER [None]
  - FALL [None]
  - KNEE ARTHROPLASTY [None]
  - LIMB OPERATION [None]
  - LOCAL SWELLING [None]
  - NEOPLASM SKIN [None]
  - SHOULDER ARTHROPLASTY [None]
